FAERS Safety Report 9164570 (Version 2)
Quarter: 2013Q2

REPORT INFORMATION
  Report Type: Spontaneous
  Country: US (occurrence: US)
  Receive Date: 20130315
  Receipt Date: 20130403
  Transmission Date: 20140414
  Serious: Yes (Disabling, Other)
  Sender: FDA-Public Use
  Company Number: PHEH2013US005939

PATIENT
  Age: 37 Year
  Sex: Male
  Weight: 52.61 kg

DRUGS (5)
  1. EXTAVIA [Suspect]
     Indication: MULTIPLE SCLEROSIS
     Dosage: 0.25 MG, QOD
     Route: 058
     Dates: start: 20130212, end: 20130212
  2. KEPPRA [Concomitant]
     Indication: CONVULSION
     Dosage: 1 DF, BID
     Route: 048
     Dates: start: 2011
  3. BACLOFEN [Concomitant]
     Indication: MUSCLE SPASTICITY
     Dosage: 1 DF, BID
     Route: 048
     Dates: start: 2011
  4. NSAID^S [Concomitant]
  5. PHENYTOIN [Concomitant]
     Indication: CONVULSION

REACTIONS (5)
  - Fall [Recovered/Resolved]
  - Abasia [Recovered/Resolved]
  - Skin reaction [Recovered/Resolved]
  - Feeling abnormal [Recovered/Resolved]
  - Asthenia [Recovered/Resolved]
